FAERS Safety Report 12165500 (Version 2)
Quarter: 2016Q1

REPORT INFORMATION
  Report Type: Spontaneous
  Country: US (occurrence: US)
  Receive Date: 20160309
  Receipt Date: 20160318
  Transmission Date: 20160526
  Serious: Yes (Death, Other)
  Sender: FDA-Public Use
  Company Number: US-GILEAD-2016-0202019

PATIENT
  Age: 43 Year
  Sex: Male

DRUGS (1)
  1. HARVONI [Suspect]
     Active Substance: LEDIPASVIR\SOFOSBUVIR
     Indication: PRODUCT USED FOR UNKNOWN INDICATION
     Dosage: UNK
     Route: 065
     Dates: start: 201602

REACTIONS (5)
  - Diabetes mellitus inadequate control [Unknown]
  - Hepatic cirrhosis [Unknown]
  - Blood bilirubin abnormal [Unknown]
  - Pulmonary arterial hypertension [Fatal]
  - Ascites [Unknown]

NARRATIVE: CASE EVENT DATE: 2016
